FAERS Safety Report 7083939-0 (Version None)
Quarter: 2010Q4

REPORT INFORMATION
  Report Type: 
  Country: None (occurrence: None)
  Receive Date: 20101104
  Receipt Date: 20100318
  Transmission Date: 20110411
  Serious: No
  Sender: FDA-Public Use
  Company Number: US-ABBOTT-10P-163-0634141-00

PATIENT
  Sex: Male
  Weight: 80.812 kg

DRUGS (3)
  1. KALETRA [Suspect]
     Indication: HIV INFECTION
     Dates: start: 20071010
  2. COMBIVIR [Suspect]
     Indication: HIV INFECTION
  3. SAQUINAVIR [Concomitant]
     Indication: HIV INFECTION

REACTIONS (2)
  - BLOOD CREATINE PHOSPHOKINASE INCREASED [None]
  - MYOPATHY [None]
